FAERS Safety Report 7330025-8 (Version None)
Quarter: 2011Q1

REPORT INFORMATION
  Report Type: 
  Country: None (occurrence: None)
  Receive Date: 20110303
  Receipt Date: 20091222
  Transmission Date: 20110831
  Serious: No
  Sender: FDA-Public Use
  Company Number: US-BAYER-200943950NA

PATIENT
  Sex: Female
  Weight: 68.027 kg

DRUGS (1)
  1. MIRENA [Suspect]
     Indication: ANTIOESTROGEN THERAPY
     Dosage: 20 MCG/24HR, UNK
     Route: 015
     Dates: start: 20081001

REACTIONS (3)
  - WEIGHT INCREASED [None]
  - VAGINAL HAEMORRHAGE [None]
  - RASH [None]
